FAERS Safety Report 9003382 (Version 2)
Quarter: 2013Q1

REPORT INFORMATION
  Report Type: Spontaneous
  Country: US (occurrence: US)
  Receive Date: 20130108
  Receipt Date: 20130111
  Transmission Date: 20140127
  Serious: Yes (Death)
  Sender: FDA-Public Use
  Company Number: US-PFIZER INC-2013006271

PATIENT
  Age: 56 Year
  Sex: Female

DRUGS (9)
  1. GABAPENTIN [Suspect]
     Dosage: UNK
     Route: 048
  2. SUMATRIPTAN SUCCINATE [Suspect]
  3. NAPROXEN SODIUM [Suspect]
  4. CITALOPRAM [Suspect]
  5. LISINOPRIL [Suspect]
  6. CLONAZEPAM [Suspect]
  7. CYCLOBENZAPRINE [Suspect]
  8. BUTALBITAL, ACETAMINOPHEN, CAFFEINE [Suspect]
  9. ZOLPIDEM [Suspect]

REACTIONS (3)
  - Completed suicide [Fatal]
  - Intentional drug misuse [None]
  - Toxicity to various agents [None]
